FAERS Safety Report 6460039-1 (Version None)
Quarter: 2009Q4

REPORT INFORMATION
  Report Type: 
  Country: None (occurrence: None)
  Receive Date: 20091129
  Receipt Date: 20091120
  Transmission Date: 20100525
  Serious: Yes (Death, Hospitalization, Congenital Anomaly)
  Sender: FDA-Public Use
  Company Number: PHHO2009AR01765

PATIENT

DRUGS (1)
  1. TASIGNA [Suspect]
     Route: 064

REACTIONS (7)
  - CARDIAC DISORDER [None]
  - CARDIAC OPERATION [None]
  - DEVICE RELATED INFECTION [None]
  - DRUG EXPOSURE DURING PREGNANCY [None]
  - HEPATOMEGALY [None]
  - PULMONARY ARTERY BANDING [None]
  - TRANSPOSITION OF THE GREAT VESSELS [None]
